FAERS Safety Report 6501338-4 (Version None)
Quarter: 2009Q4

REPORT INFORMATION
  Report Type: 
  Country: None (occurrence: None)
  Receive Date: 20091215
  Receipt Date: 20091215
  Transmission Date: 20100525
  Serious: Yes (Other)
  Sender: FDA-Public Use
  Company Number: None

PATIENT
  Age: 47 Year
  Sex: Female
  Weight: 104.3273 kg

DRUGS (1)
  1. ARMOUR THYROID 180 MG [Suspect]

REACTIONS (1)
  - EMOTIONAL DISTRESS [None]
